FAERS Safety Report 5961493-1 (Version None)
Quarter: 2008Q4

REPORT INFORMATION
  Report Type: 
  Country: None (occurrence: None)
  Receive Date: 20081121
  Receipt Date: 20081111
  Transmission Date: 20090506
  Serious: Yes (Death, Other)
  Sender: FDA-Public Use
  Company Number: US-AVENTIS-200816666US

PATIENT
  Sex: Male
  Weight: 81.65 kg

DRUGS (8)
  1. LOVENOX [Suspect]
     Indication: PROPHYLAXIS
     Route: 058
     Dates: start: 20080909, end: 20080914
  2. ASPIRIN [Concomitant]
     Dosage: DOSE: UNK
  3. THALIDOMIDE [Concomitant]
     Indication: MULTIPLE MYELOMA
     Dosage: DOSE: UNK
  4. LOPRESSOR [Concomitant]
     Dates: start: 20071101, end: 20080925
  5. ALLOPURINOL [Concomitant]
     Indication: GOUT
     Dosage: DOSE: UNK
  6. LEXAPRO [Concomitant]
     Dosage: DOSE: UNK
  7. DECADRON [Concomitant]
     Indication: MULTIPLE MYELOMA
     Dosage: DOSE: UNK
  8. NIFEDIPINE [Concomitant]
     Dates: start: 20071101, end: 20080925

REACTIONS (15)
  - AMMONIA INCREASED [None]
  - CONFUSIONAL STATE [None]
  - DELIRIUM [None]
  - DISORIENTATION [None]
  - GASTROINTESTINAL HAEMORRHAGE [None]
  - HAEMATOCRIT DECREASED [None]
  - HAEMOGLOBIN DECREASED [None]
  - HEPATIC ENZYME INCREASED [None]
  - INCISION SITE HAEMORRHAGE [None]
  - LIVER INJURY [None]
  - METABOLIC ENCEPHALOPATHY [None]
  - RECTAL HAEMORRHAGE [None]
  - SOMNOLENCE [None]
  - THROMBOCYTOPENIA [None]
  - WHITE BLOOD CELL COUNT INCREASED [None]
